FAERS Safety Report 10747170 (Version 1)
Quarter: 2015Q1

REPORT INFORMATION
  Report Type: Spontaneous
  Country: GB (occurrence: GB)
  Receive Date: 20150129
  Receipt Date: 20150129
  Transmission Date: 20150721
  Serious: Yes (Disabling)
  Sender: FDA-Public Use
  Company Number: GB-THROMBOGENICS NV-SPO-2015-1685

PATIENT
  Age: 67 Year
  Sex: Female

DRUGS (1)
  1. JETREA [Suspect]
     Active Substance: OCRIPLASMIN
     Indication: MACULAR HOLE
     Dosage: 0.125 MG, ONE TIME DOSE
     Route: 031
     Dates: start: 20140224, end: 20140224

REACTIONS (3)
  - Drug ineffective for unapproved indication [Unknown]
  - Off label use [Unknown]
  - Eye haemorrhage [Recovered/Resolved with Sequelae]

NARRATIVE: CASE EVENT DATE: 20140509
